FAERS Safety Report 19929704 (Version 1)
Quarter: 2021Q4

REPORT INFORMATION
  Report Type: Spontaneous
  Country: HU (occurrence: HU)
  Receive Date: 20211007
  Receipt Date: 20211007
  Transmission Date: 20220303
  Serious: Yes (Other)
  Sender: FDA-Public Use
  Company Number: HU-002147023-NVSC2021HU132146

PATIENT
  Age: 37 Year
  Sex: Male

DRUGS (10)
  1. ADALIMUMAB [Suspect]
     Active Substance: ADALIMUMAB
     Indication: Product used for unknown indication
     Dosage: 40 MG, Q2W
     Route: 058
     Dates: end: 202103
  2. ADALIMUMAB [Suspect]
     Active Substance: ADALIMUMAB
     Indication: Product used for unknown indication
     Dosage: 150 MG, QD
     Route: 065
     Dates: end: 202105
  3. DICLOFENAC [Suspect]
     Active Substance: DICLOFENAC
     Indication: Product used for unknown indication
     Dosage: 150 MG, QD
     Route: 065
     Dates: start: 201903, end: 201906
  4. SECUKINUMAB [Suspect]
     Active Substance: SECUKINUMAB
     Indication: Product used for unknown indication
     Dosage: UNK
     Route: 065
  5. AMLODIPINE [Concomitant]
     Active Substance: AMLODIPINE BESYLATE
     Indication: Blood pressure abnormal
     Dosage: 1 DF, QD (IN THE EVENING)
     Route: 065
     Dates: start: 20190801
  6. METHOTREXATE [Concomitant]
     Active Substance: METHOTREXATE
     Indication: Psoriasis
     Dosage: 10 MG, QW
     Route: 065
  7. PERINDOPRIL [Concomitant]
     Active Substance: PERINDOPRIL
     Indication: Blood pressure abnormal
     Dosage: 8 MG
     Route: 065
  8. IBUPROFEN [Concomitant]
     Active Substance: IBUPROFEN
     Indication: Product used for unknown indication
     Dosage: 800 MG, 1X
     Route: 065
     Dates: end: 201912
  9. NAPROXEN [Concomitant]
     Active Substance: NAPROXEN
     Indication: Product used for unknown indication
     Dosage: 550 MG, 2X
     Route: 065
     Dates: start: 201906
  10. FOLIC ACID [Concomitant]
     Active Substance: FOLIC ACID
     Indication: Product used for unknown indication
     Dosage: 3 MG, QD
     Route: 065
     Dates: start: 20030301

REACTIONS (23)
  - Polyarthritis [Recovered/Resolved]
  - Blood uric acid increased [Unknown]
  - Joint effusion [Recovered/Resolved]
  - Drug ineffective [Unknown]
  - Liver function test increased [Recovered/Resolved]
  - Pyrexia [Unknown]
  - Arthropathy [Unknown]
  - Joint swelling [Recovered/Resolved]
  - Hypertension [Unknown]
  - Musculoskeletal disorder [Unknown]
  - Sacroiliitis [Unknown]
  - Ligament calcification [Unknown]
  - Back disorder [Unknown]
  - Hepatitis B core antibody positive [Unknown]
  - C-reactive protein increased [Recovered/Resolved]
  - Hepatomegaly [Unknown]
  - Product dose omission issue [Unknown]
  - Localised oedema [Unknown]
  - Psoriasis [Recovered/Resolved]
  - Spinal pain [Unknown]
  - Spinal disorder [Unknown]
  - Respiratory disorder [Unknown]
  - Enthesopathy [Recovered/Resolved]

NARRATIVE: CASE EVENT DATE: 20190801
